APPROVED DRUG PRODUCT: OLANZAPINE AND FLUOXETINE HYDROCHLORIDE
Active Ingredient: FLUOXETINE HYDROCHLORIDE; OLANZAPINE
Strength: EQ 50MG BASE;EQ 12MG BASE
Dosage Form/Route: CAPSULE;ORAL
Application: A078901 | Product #004 | TE Code: AB
Applicant: EPIC PHARMA LLC
Approved: Nov 16, 2012 | RLD: No | RS: No | Type: RX